FAERS Safety Report 17442989 (Version 1)
Quarter: 2020Q1

REPORT INFORMATION
  Report Type: Other
  Country: GB (occurrence: GB)
  Receive Date: 20200221
  Receipt Date: 20200221
  Transmission Date: 20200409
  Serious: No
  Sender: FDA-Public Use
  Company Number: GB-LUPIN PHARMACEUTICALS INC.-2019-01467

PATIENT
  Age: 27 Year
  Sex: Male

DRUGS (1)
  1. SERTRALINE [Suspect]
     Active Substance: SERTRALINE HYDROCHLORIDE
     Indication: PRODUCT USED FOR UNKNOWN INDICATION
     Dosage: 100 MILLIGRAM, QD (TWO OF THE 100MG TABLETS)
     Route: 048

REACTIONS (3)
  - Accidental overdose [Unknown]
  - Dizziness [Recovered/Resolved]
  - Product dispensing error [Unknown]
